FAERS Safety Report 5374056-6 (Version None)
Quarter: 2007Q2

REPORT INFORMATION
  Report Type: 
  Country: None (occurrence: None)
  Receive Date: 20070627
  Receipt Date: 20070611
  Transmission Date: 20071010
  Serious: Yes (Hospitalization)
  Sender: FDA-Public Use
  Company Number: 2007BI011062

PATIENT
  Age: 58 Year
  Sex: Female

DRUGS (12)
  1. AVONEX [Suspect]
     Indication: MULTIPLE SCLEROSIS
     Dosage: 30 UG;QW; IM
     Route: 030
     Dates: start: 19960122
  2. AVONEX [Suspect]
     Indication: MULTIPLE SCLEROSIS
     Dosage: 30 UG; QW; IM
     Route: 030
     Dates: start: 20050101, end: 20070401
  3. BACLOFEN [Concomitant]
  4. CARBAMAZEPINE [Concomitant]
  5. ESTRADIOL [Concomitant]
  6. DITROPAN [Concomitant]
  7. DITROPAN [Concomitant]
  8. CRANBERRY FRUIT C [Concomitant]
  9. MACROBID [Concomitant]
  10. IRON SULFATETHIAMIN COMPOUND TAB [Concomitant]
  11. TOFRANIL [Concomitant]
  12. ZANTAC [Concomitant]

REACTIONS (4)
  - ANAEMIA [None]
  - BLOOD DISORDER [None]
  - GASTRITIS [None]
  - HAEMORRHAGE [None]
